FAERS Safety Report 10161739 (Version 2)
Quarter: 2014Q2

REPORT INFORMATION
  Report Type: Spontaneous
  Country: GB (occurrence: None)
  Receive Date: 20140507
  Receipt Date: 20140523
  Transmission Date: 20141212
  Serious: Yes (Other)
  Sender: FDA-Public Use
  Company Number: AUR-APL-2014-05274

PATIENT
  Age: 69 Year
  Sex: Female

DRUGS (1)
  1. SIMVASTATIN [Suspect]
     Indication: PRODUCT USED FOR UNKNOWN INDICATION
     Dosage: (20 MG, 1 D)
     Dates: start: 20120601

REACTIONS (6)
  - Alopecia [None]
  - Weight decreased [None]
  - Anxiety [None]
  - Breast atrophy [None]
  - Aortic calcification [None]
  - Vascular calcification [None]
